FAERS Safety Report 5853392-0 (Version None)
Quarter: 2008Q3

REPORT INFORMATION
  Report Type: 
  Country: None (occurrence: None)
  Receive Date: 20080821
  Receipt Date: 20080812
  Transmission Date: 20090109
  Serious: Yes (Life-Threatening, Hospitalization)
  Sender: FDA-Public Use
  Company Number: DE-PFIZER INC-2008067037

PATIENT
  Sex: Male
  Weight: 82 kg

DRUGS (1)
  1. SORTIS [Suspect]
     Indication: HYPERLIPIDAEMIA
     Dosage: DAILY DOSE:20MG
     Route: 048
     Dates: start: 20071206, end: 20080703

REACTIONS (8)
  - EYELID OEDEMA [None]
  - FOOD INTOLERANCE [None]
  - GASTRIC DISORDER [None]
  - LARYNGOSPASM [None]
  - MUSCLE SPASMS [None]
  - MYALGIA [None]
  - NEPHROTIC SYNDROME [None]
  - OEDEMA [None]
